FAERS Safety Report 12110996 (Version 1)
Quarter: 2016Q1

REPORT INFORMATION
  Report Type: Spontaneous
  Country: US (occurrence: US)
  Receive Date: 20160224
  Receipt Date: 20160224
  Transmission Date: 20160526
  Serious: No
  Sender: FDA-Public Use
  Company Number: US-JAZZ-2015-US-007165

PATIENT
  Sex: Female

DRUGS (2)
  1. PRIALT [Suspect]
     Active Substance: ZICONOTIDE ACETATE
     Indication: ABDOMINAL PAIN
     Dosage: UNK ?G, QH
     Route: 037
     Dates: start: 2014
  2. MORPHINE SULFATE. [Suspect]
     Active Substance: MORPHINE SULFATE
     Indication: ABDOMINAL PAIN
     Dosage: UNK MG, QH
     Route: 037

REACTIONS (3)
  - Hallucination, auditory [Unknown]
  - Oedema peripheral [Unknown]
  - Hallucination, visual [Unknown]
